FAERS Safety Report 8474175-1 (Version None)
Quarter: 2012Q2

REPORT INFORMATION
  Report Type: 
  Country: None (occurrence: None)
  Receive Date: 20120628
  Receipt Date: 20120622
  Transmission Date: 20120825
  Serious: No
  Sender: FDA-Public Use
  Company Number: US-PFIZER INC-2012151400

PATIENT
  Sex: Female

DRUGS (6)
  1. COD-LIVER OIL [Suspect]
     Dosage: UNK
  2. LORTAB [Suspect]
     Dosage: UNK
  3. POTASSIUM PENICILLIN G [Suspect]
     Dosage: UNK
  4. FLEXERIL [Suspect]
     Dosage: UNK
  5. CLONAZEPAM [Suspect]
     Dosage: UNK
  6. VALIUM [Suspect]
     Dosage: UNK

REACTIONS (1)
  - DRUG HYPERSENSITIVITY [None]
